FAERS Safety Report 9197013 (Version 1)
Quarter: 2013Q1

REPORT INFORMATION
  Report Type: Spontaneous
  Country: US (occurrence: None)
  Receive Date: 20120709
  Receipt Date: 20120709
  Transmission Date: 20140127
  Serious: Yes (Other)
  Sender: FDA-Public Use
  Company Number: PHEH2012US001525

PATIENT
  Sex: Male
  Weight: 67.3 kg

DRUGS (2)
  1. GLEEVEC [Suspect]
     Indication: CHRONIC MYELOID LEUKAEMIA
     Route: 048
     Dates: start: 20061024, end: 200702
  2. DIURETICS [Concomitant]

REACTIONS (3)
  - Acute myeloid leukaemia [None]
  - Pleural effusion [None]
  - Therapeutic response decreased [None]
